FAERS Safety Report 6983778-2 (Version None)
Quarter: 2010Q3

REPORT INFORMATION
  Report Type: 
  Country: None (occurrence: None)
  Receive Date: 20100914
  Receipt Date: 20090112
  Transmission Date: 20110219
  Serious: No
  Sender: FDA-Public Use
  Company Number: US-WYE-H07659009

PATIENT
  Sex: Male

DRUGS (4)
  1. ADVIL LIQUI-GELS [Suspect]
     Indication: HEADACHE
     Dosage: UNKNOWN
     Route: 065
  2. ADVIL LIQUI-GELS [Suspect]
     Indication: SINUS HEADACHE
  3. ACETAMINOPHEN, ASPIRIN AND CAFFEINE [Suspect]
     Indication: HEADACHE
     Dosage: UNKNOWN
     Route: 065
  4. ACETAMINOPHEN, ASPIRIN AND CAFFEINE [Suspect]
     Indication: SINUS HEADACHE

REACTIONS (3)
  - CONDITION AGGRAVATED [None]
  - DRUG INEFFECTIVE [None]
  - SINUS HEADACHE [None]
